FAERS Safety Report 20408016 (Version 2)
Quarter: 2022Q1

REPORT INFORMATION
  Report Type: Spontaneous
  Country: RO (occurrence: RO)
  Receive Date: 20220201
  Receipt Date: 20220208
  Transmission Date: 20220423
  Serious: Yes (Other)
  Sender: FDA-Public Use
  Company Number: RO-ROCHE-3001000

PATIENT
  Age: 42 Year
  Sex: Male

DRUGS (12)
  1. DEXAMETHASONE [Suspect]
     Active Substance: DEXAMETHASONE
     Indication: COVID-19 pneumonia
     Route: 065
     Dates: start: 202012
  2. TOCILIZUMAB [Suspect]
     Active Substance: TOCILIZUMAB
     Indication: COVID-19 pneumonia
     Route: 065
     Dates: start: 202012
  3. FAVIPIRAVIR [Concomitant]
     Active Substance: FAVIPIRAVIR
     Indication: COVID-19 pneumonia
     Route: 042
     Dates: start: 20201225, end: 20210101
  4. REMDESIVIR [Concomitant]
     Active Substance: REMDESIVIR
     Indication: COVID-19 pneumonia
     Dosage: REMDESIVIR X 3Z
     Route: 042
     Dates: start: 20201229, end: 20210103
  5. REMDESIVIR [Concomitant]
     Active Substance: REMDESIVIR
     Dosage: REMDESIVIR X 5Z
     Route: 042
     Dates: start: 20210103, end: 20210110
  6. UNSPECIFIED INGREDIENT [Concomitant]
     Active Substance: UNSPECIFIED INGREDIENT
     Indication: COVID-19 pneumonia
     Dosage: PROPHYLACTIC DOSE
     Dates: start: 202012
  7. CEFTRIAXONE [Concomitant]
     Active Substance: CEFTRIAXONE
     Indication: COVID-19 pneumonia
     Dates: start: 202012
  8. OXYGEN [Concomitant]
     Active Substance: OXYGEN
     Indication: COVID-19 pneumonia
     Dosage: SUPPLEMENTAL OXYGEN THERAPY
     Dates: start: 202012
  9. VANCOMYCIN [Concomitant]
     Active Substance: VANCOMYCIN
     Indication: Bacterial sepsis
     Route: 042
     Dates: start: 20210116, end: 20210126
  10. VANCOMYCIN [Concomitant]
     Active Substance: VANCOMYCIN
     Route: 048
     Dates: start: 20210121, end: 20210130
  11. MEROPENEM [Concomitant]
     Active Substance: MEROPENEM
     Indication: Bacterial sepsis
     Route: 042
     Dates: start: 20210116, end: 20210126
  12. FLUCONAZOLE [Concomitant]
     Active Substance: FLUCONAZOLE
     Indication: Bacterial sepsis
     Route: 048
     Dates: start: 20210116, end: 20210126

REACTIONS (1)
  - Pulmonary cavitation [Recovering/Resolving]
